FAERS Safety Report 23462180 (Version 1)
Quarter: 2024Q1

REPORT INFORMATION
  Report Type: Other
  Country: GB (occurrence: GB)
  Receive Date: 20240131
  Receipt Date: 20240131
  Transmission Date: 20240409
  Serious: Yes (Other)
  Sender: FDA-Public Use
  Company Number: GB-GLENMARK PHARMACEUTICALS-2024GMK088545

PATIENT

DRUGS (4)
  1. ZOLMITRIPTAN [Suspect]
     Active Substance: ZOLMITRIPTAN
     Indication: Migraine
     Dosage: 1 DOSAGE FORM, TAKE ONE TABLET FOR MIGRAINE ATTACK. IF SYMPTOMS COME BACK..
     Route: 065
     Dates: start: 20231130, end: 20240102
  2. NAPROXEN [Concomitant]
     Active Substance: NAPROXEN
     Indication: Back pain
     Dosage: UNK, BID, ONE TO BE TAKEN TWICE A DAY
     Route: 065
     Dates: start: 20231113, end: 20231212
  3. ZOLMITRIPTAN [Concomitant]
     Active Substance: ZOLMITRIPTAN
     Indication: Migraine
     Dosage: 1 DOSAGE FORM, ONE TABLET A START OF HEADACHE CAN REPEAT THE DOSE 2 HOURS LATER, MAX DOSE IS 10MG DA
     Route: 065
     Dates: start: 20231130, end: 20240117
  4. ZOLMITRIPTAN [Concomitant]
     Active Substance: ZOLMITRIPTAN
     Indication: Headache

REACTIONS (3)
  - Serotonin syndrome [Unknown]
  - Diarrhoea [Recovered/Resolved]
  - Vomiting [Recovering/Resolving]

NARRATIVE: CASE EVENT DATE: 20231201
